FAERS Safety Report 8967777 (Version 3)
Quarter: 2014Q3

REPORT INFORMATION
  Report Type: Spontaneous
  Country: US (occurrence: US)
  Receive Date: 20121217
  Receipt Date: 20140730
  Transmission Date: 20150326
  Serious: Yes (Hospitalization)
  Sender: FDA-Public Use
  Company Number: US-ASTRAZENECA-2012SE92310

PATIENT
  Age: 61 Year
  Sex: Female
  Weight: 86.2 kg

DRUGS (6)
  1. SYMBICORT [Suspect]
     Active Substance: BUDESONIDE\FORMOTEROL FUMARATE DIHYDRATE
     Indication: PRODUCT USED FOR UNKNOWN INDICATION
     Route: 055
  2. AMPICILLIN [Suspect]
     Active Substance: AMPICILLIN
     Dosage: GENERIC
     Route: 065
  3. SINGULAIR [Suspect]
     Active Substance: MONTELUKAST SODIUM
     Route: 048
  4. ADVAIR DISKUS [Suspect]
     Active Substance: FLUTICASONE PROPIONATE\SALMETEROL XINAFOATE
     Indication: ASTHMA
     Dosage: 250/50 MCG
     Route: 065
     Dates: start: 20130110
  5. PENICILLIN [Suspect]
     Active Substance: PENICILLIN
     Dosage: GENERIC
     Route: 065
  6. ADVAIR DISKUS [Suspect]
     Active Substance: FLUTICASONE PROPIONATE\SALMETEROL XINAFOATE
     Indication: ASTHMA
     Dosage: 100/50 MCG, 1 PUFF TWICE DAILY
     Route: 065

REACTIONS (6)
  - Asthma [Unknown]
  - Urinary tract infection [Unknown]
  - Rhinitis allergic [Unknown]
  - Drug hypersensitivity [Unknown]
  - Cyanosis [Unknown]
  - Pneumonia [Unknown]

NARRATIVE: CASE EVENT DATE: 20131221
